FAERS Safety Report 6496739-7 (Version None)
Quarter: 2009Q4

REPORT INFORMATION
  Report Type: 
  Country: None (occurrence: None)
  Receive Date: 20091211
  Receipt Date: 20091201
  Transmission Date: 20100525
  Serious: Yes (Death)
  Sender: FDA-Public Use
  Company Number: 092

PATIENT
  Sex: Male

DRUGS (2)
  1. FAZACLO ODT [Suspect]
     Indication: SCHIZOPHRENIA
     Dosage: 200 MG PO DAILY
     Route: 048
     Dates: start: 20050524, end: 20060926
  2. TOPROL-XL [Concomitant]

REACTIONS (3)
  - INFLUENZA LIKE ILLNESS [None]
  - PNEUMONIA [None]
  - THERAPEUTIC AGENT TOXICITY [None]
